FAERS Safety Report 5708988-3 (Version None)
Quarter: 2008Q2

REPORT INFORMATION
  Report Type: 
  Country: None (occurrence: None)
  Receive Date: 20080414
  Receipt Date: 20080414
  Transmission Date: 20081010
  Serious: No
  Sender: FDA-Public Use
  Company Number: None

PATIENT
  Age: 82 Year
  Sex: Female

DRUGS (1)
  1. NITROGLYCERIN [Suspect]
     Dosage: 0.2MG ON 12HRS OFF 12 HR TRANSDERMAL
     Route: 062
     Dates: start: 20080309, end: 20080410

REACTIONS (1)
  - APPLICATION SITE BURN [None]
